FAERS Safety Report 8403020 (Version 4)
Quarter: 2012Q4

REPORT INFORMATION
  Report Type: 
  Country: AT (occurrence: AT)
  Receive Date: 20120213
  Receipt Date: 20120829
  Transmission Date: 20130627
  Serious: Yes (Death, Hospitalization, Other)
  Sender: FDA-Public Use
  Company Number: AT-CELGENEUS-009-21880-11011797

PATIENT

DRUGS (4)
  1. REVLIMID [Suspect]
     Indication: MALT LYMPHOMA
     Dosage: 25 Milligram
     Route: 048
  2. REVLIMID [Suspect]
     Indication: SJOGREN^S SYNDROME
     Dosage: 15 Milligram
     Route: 048
  3. REVLIMID [Suspect]
     Indication: AUTOIMMUNE THYROIDITIS
  4. ACETYLSALICYLIC ACID [Concomitant]
     Indication: THROMBOEMBOLISM PROPHYLAXIS
     Route: 065

REACTIONS (44)
  - Extranodal marginal zone B-cell lymphoma (MALT type) [Fatal]
  - Diffuse large B-cell lymphoma [Unknown]
  - Infective exacerbation of chronic obstructive airways disease [Unknown]
  - Tumour flare [Unknown]
  - Pleural effusion [Unknown]
  - Exfoliative rash [Recovered/Resolved]
  - Pruritus [Recovered/Resolved]
  - Pneumonia [Recovered/Resolved]
  - Neutropenia [Unknown]
  - Leukopenia [Unknown]
  - Thrombocytopenia [Unknown]
  - Femur fracture [Unknown]
  - Biliary colic [Unknown]
  - Febrile infection [Unknown]
  - Conjunctivitis [Recovered/Resolved]
  - Alopecia [Unknown]
  - Bursitis [Unknown]
  - Mucosal inflammation [Unknown]
  - Eye oedema [Unknown]
  - Dyspepsia [Recovered/Resolved]
  - Vertigo [Recovered/Resolved]
  - Gastritis [Unknown]
  - Rash [Unknown]
  - Vomiting [Unknown]
  - Constipation [Unknown]
  - Decreased appetite [Unknown]
  - Tremor [Recovered/Resolved]
  - Headache [Recovered/Resolved]
  - Arthralgia [Recovered/Resolved]
  - Cough [Unknown]
  - Diarrhoea [Unknown]
  - Agitation [Unknown]
  - Insomnia [Unknown]
  - Dysgeusia [Unknown]
  - Dry skin [Unknown]
  - Herpes zoster [Unknown]
  - Lymphopenia [Unknown]
  - Pain in extremity [Unknown]
  - Anaemia [Unknown]
  - Paraesthesia [Recovered/Resolved]
  - Skin reaction [Unknown]
  - Fatigue [Unknown]
  - Nausea [Unknown]
  - Muscle spasms [Unknown]
